FAERS Safety Report 11682048 (Version 2)
Quarter: 2015Q4

REPORT INFORMATION
  Report Type: Other
  Country: IT (occurrence: IT)
  Receive Date: 20151029
  Receipt Date: 20151206
  Transmission Date: 20160304
  Serious: Yes (Other)
  Sender: FDA-Public Use
  Company Number: IT-MYLANLABS-2015M1035958

PATIENT

DRUGS (5)
  1. ATEM [Suspect]
     Active Substance: IPRATROPIUM BROMIDE
     Indication: PNEUMONITIS
     Dosage: 2 ML DAILY
     Dates: start: 20150929, end: 20151008
  2. LEVOFLOXACIN. [Suspect]
     Active Substance: LEVOFLOXACIN
     Indication: PNEUMONITIS
     Dosage: 750 MG DAILY
     Route: 048
     Dates: start: 20150929, end: 20151008
  3. ROCEFIN [Suspect]
     Active Substance: CEFTRIAXONE SODIUM
     Indication: PNEUMONITIS
     Dosage: 1 G DAILY
     Route: 030
     Dates: start: 20150929, end: 20151008
  4. CLENIL                             /00212602/ [Suspect]
     Active Substance: BECLOMETHASONE DIPROPIONATE
     Indication: PNEUMONITIS
     Dosage: 1 DF DAILY
     Dates: start: 20150929, end: 20151008
  5. COUMADIN [Concomitant]
     Active Substance: WARFARIN SODIUM
     Indication: PRODUCT USED FOR UNKNOWN INDICATION

REACTIONS (2)
  - Drug hypersensitivity [Recovered/Resolved]
  - Generalised erythema [Recovered/Resolved]

NARRATIVE: CASE EVENT DATE: 20151008
